FAERS Safety Report 8610966-1 (Version None)
Quarter: 2012Q3

REPORT INFORMATION
  Report Type: 
  Country: None (occurrence: None)
  Receive Date: 20120822
  Receipt Date: 20111207
  Transmission Date: 20120928
  Serious: No
  Sender: FDA-Public Use
  Company Number: US-009507513-1208USA008266

PATIENT

DRUGS (5)
  1. PEGINTERFERON ALFA-2A [Suspect]
     Indication: HEPATITIS C
     Dosage: 180 MICROGRAM, QW
     Dates: start: 20100211
  2. RIBAVIRIN [Suspect]
     Indication: HEPATITIS C
     Dosage: DIVIDED DOSES (1000 MG, 1 IN 1 D)
     Dates: start: 20100211
  3. RIBAVIRIN [Suspect]
     Dosage: DIVIDED DOSES (1000 MG, 1 IN 1 D)
     Dates: start: 20110715
  4. VICTRELIS [Suspect]
     Indication: HEPATITIS C
     Dosage: 800 MG, TID
     Dates: start: 20110813
  5. PEGINTERFERON ALFA-2A [Suspect]
     Dosage: 180 MICROGRAM, QW
     Dates: start: 20110715

REACTIONS (6)
  - COUGH [None]
  - UNEVALUABLE EVENT [None]
  - ABDOMINAL PAIN UPPER [None]
  - PYREXIA [None]
  - CHILLS [None]
  - NASOPHARYNGITIS [None]
